FAERS Safety Report 8462782-1 (Version None)
Quarter: 2012Q2

REPORT INFORMATION
  Report Type: 
  Country: None (occurrence: None)
  Receive Date: 20120625
  Receipt Date: 20120612
  Transmission Date: 20120825
  Serious: No
  Sender: FDA-Public Use
  Company Number: US-ASTRAZENECA-2012SE39224

PATIENT
  Age: 68 Year
  Sex: Female
  Weight: 90.7 kg

DRUGS (4)
  1. NEXIUM [Suspect]
     Indication: GASTROOESOPHAGEAL REFLUX DISEASE
     Route: 048
  2. PAXIL [Concomitant]
     Indication: DEPRESSION
  3. AMLODIPINE [Concomitant]
     Indication: BLOOD PRESSURE
  4. CLOBETASOL PROPIONATE [Concomitant]
     Indication: DRY SKIN

REACTIONS (7)
  - DRY SKIN [None]
  - CHEST PAIN [None]
  - GASTROOESOPHAGEAL REFLUX DISEASE [None]
  - PAIN IN EXTREMITY [None]
  - VOMITING [None]
  - INTENTIONAL DRUG MISUSE [None]
  - BLADDER DISORDER [None]
